FAERS Safety Report 6039934-3 (Version None)
Quarter: 2009Q1

REPORT INFORMATION
  Report Type: 
  Country: None (occurrence: None)
  Receive Date: 20090116
  Receipt Date: 20080901
  Transmission Date: 20090719
  Serious: No
  Sender: FDA-Public Use
  Company Number: US-BRISTOL-MYERS SQUIBB COMPANY-13731427

PATIENT
  Sex: Male

DRUGS (1)
  1. ABILIFY [Suspect]
     Dosage: 1 DOSAGE FORM = 5MG AND 15MG

REACTIONS (3)
  - MALAISE [None]
  - OBSESSIVE-COMPULSIVE DISORDER [None]
  - SPEECH DISORDER [None]
